FAERS Safety Report 6079757-2 (Version None)
Quarter: 2009Q1

REPORT INFORMATION
  Report Type: 
  Country: None (occurrence: None)
  Receive Date: 20090217
  Receipt Date: 20090205
  Transmission Date: 20090719
  Serious: Yes (Other)
  Sender: FDA-Public Use
  Company Number: BR-BAYER-200912185LA

PATIENT
  Age: 30 Year
  Sex: Female
  Weight: 69 kg

DRUGS (3)
  1. YASMIN [Suspect]
     Indication: POLYCYSTIC OVARIES
     Route: 048
     Dates: start: 20050101, end: 20080101
  2. YASMIN [Suspect]
     Route: 048
     Dates: start: 20040101, end: 20050701
  3. YAZ [Suspect]
     Indication: ORAL CONTRACEPTION
     Route: 048
     Dates: start: 20080101

REACTIONS (7)
  - BREAST SWELLING [None]
  - HEADACHE [None]
  - MALAISE [None]
  - NAUSEA [None]
  - PHOTOPHOBIA [None]
  - SOMNOLENCE [None]
  - WEIGHT INCREASED [None]
